FAERS Safety Report 15048088 (Version 1)
Quarter: 2018Q2

REPORT INFORMATION
  Report Type: Spontaneous
  Country: DE (occurrence: DE)
  Receive Date: 20180622
  Receipt Date: 20180622
  Transmission Date: 20180711
  Serious: Yes (Hospitalization)
  Sender: FDA-Public Use
  Company Number: DE-TEVA-2018-DE-910888

PATIENT
  Age: 92 Year
  Sex: Female

DRUGS (11)
  1. ALENDRONS?URE [Concomitant]
     Dosage: DI
     Route: 065
  2. PANTOPRAZOL [Concomitant]
     Active Substance: PANTOPRAZOLE SODIUM
     Dosage: 40 MILLIGRAM DAILY; 40 MG, 1-0-0-0
  3. PROPAFENON [Suspect]
     Active Substance: PROPAFENONE
     Dosage: 150 MG, 1-0-1-0
     Route: 065
  4. METAMIZOL [Concomitant]
     Active Substance: METAMIZOLE SODIUM
     Dosage: NK MG, 40-40-40-40, TROPFEN
     Route: 065
  5. ASS 100 [Concomitant]
     Active Substance: ASPIRIN
     Dosage: 100 MILLIGRAM DAILY; 100 MG, 0-1-0-0
     Route: 065
  6. LACTULOSE. [Concomitant]
     Active Substance: LACTULOSE
     Dosage: NK MG, NK
     Route: 065
  7. OXYCODONE HYDROCHLORIDE. [Suspect]
     Active Substance: OXYCODONE HYDROCHLORIDE
     Dosage: 20 MILLIGRAM DAILY; 10 MG, 1-0-0-1
     Route: 065
  8. DONEPEZIL. [Suspect]
     Active Substance: DONEPEZIL
     Dosage: 5 MILLIGRAM DAILY; 5 MG, 1-0-0-0
     Route: 065
  9. CALCIVIT D FORTE [Concomitant]
     Dosage: 2 DOSAGE FORMS DAILY; 1000|880 MG/IE, 1-1-0-0
     Route: 065
  10. MCP [Concomitant]
     Active Substance: METOCLOPRAMIDE HYDROCHLORIDE
     Dosage: 20 MILLIGRAM DAILY; 10 MG, 0-1-0-1
     Route: 065
  11. TORASEMID [Suspect]
     Active Substance: TORSEMIDE
     Dosage: 5 MILLIGRAM DAILY; 20 MG, 0.25-0-0-0
     Route: 065

REACTIONS (4)
  - Confusional state [Unknown]
  - Gastritis [Unknown]
  - Dehydration [Unknown]
  - Abdominal pain upper [Unknown]
